FAERS Safety Report 8561922-3 (Version None)
Quarter: 2012Q3

REPORT INFORMATION
  Report Type: 
  Country: None (occurrence: None)
  Receive Date: 20120802
  Receipt Date: 20120725
  Transmission Date: 20120928
  Serious: Yes (Death, Other)
  Sender: FDA-Public Use
  Company Number: BG-CELGENEUS-022-21880-12063253

PATIENT
  Sex: Female
  Weight: 63 kg

DRUGS (12)
  1. DEXAMETHASONE [Suspect]
     Dosage: 20 MILLIGRAM
     Route: 065
  2. NEXIUM [Concomitant]
     Route: 065
  3. PROBITOR [Concomitant]
     Route: 065
  4. MILGAMMA [Concomitant]
     Route: 065
  5. REVLIMID [Suspect]
     Indication: MULTIPLE MYELOMA
     Dosage: 25 MILLIGRAM
     Route: 048
     Dates: start: 20120530, end: 20120607
  6. DEXAMETHASONE [Suspect]
     Indication: MULTIPLE MYELOMA
     Dosage: 40 MILLIGRAM
     Route: 065
     Dates: start: 20120523, end: 20120526
  7. UROMITHEXANE [Concomitant]
     Indication: MULTIPLE MYELOMA
     Dosage: 800 MILLIGRAM
     Route: 065
     Dates: start: 20120523, end: 20120525
  8. ELECTROLYTE INFUSIONS [Concomitant]
     Route: 041
  9. DOXORUBICIN HYDROCHLORIDE [Suspect]
     Indication: MULTIPLE MYELOMA
     Dosage: 80 MILLIGRAM
     Route: 065
     Dates: start: 20120526, end: 20120526
  10. DEXAMETHASONE [Suspect]
     Dosage: 40 MILLIGRAM
     Route: 065
     Dates: start: 20120602, end: 20120605
  11. CYCLOPHOSPHAMIDE [Suspect]
     Indication: MULTIPLE MYELOMA
     Dosage: 1000 MILLIGRAM
     Route: 065
     Dates: start: 20120523, end: 20120525
  12. VINCRISTINE [Suspect]
     Indication: MULTIPLE MYELOMA
     Dosage: 2 MILLIGRAM
     Route: 065
     Dates: start: 20120526, end: 20120602

REACTIONS (2)
  - CIRCULATORY COLLAPSE [None]
  - BONE MARROW FAILURE [None]
